FAERS Safety Report 21229284 (Version 2)
Quarter: 2022Q3

REPORT INFORMATION
  Report Type: Spontaneous
  Country: US (occurrence: US)
  Receive Date: 20220818
  Receipt Date: 20220822
  Transmission Date: 20221027
  Serious: No
  Sender: FDA-Public Use
  Company Number: US-PFIZER INC-202201061286

PATIENT
  Age: 62 Year
  Sex: Female
  Weight: 84.82 kg

DRUGS (3)
  1. ZITHROMAX [Suspect]
     Active Substance: AZITHROMYCIN DIHYDRATE
     Indication: Ear discomfort
     Dosage: UNK
  2. ZITHROMAX [Suspect]
     Active Substance: AZITHROMYCIN DIHYDRATE
     Indication: Cough
  3. PREDNISONE [Concomitant]
     Active Substance: PREDNISONE
     Dosage: UNK

REACTIONS (6)
  - Drug ineffective [Unknown]
  - Vertigo [Unknown]
  - Dyspnoea [Unknown]
  - Feeling abnormal [Unknown]
  - Vocal cord paralysis [Unknown]
  - Muscle twitching [Unknown]

NARRATIVE: CASE EVENT DATE: 20210101
